FAERS Safety Report 8936762 (Version 2)
Quarter: 2014Q1

REPORT INFORMATION
  Report Type: Report from Study
  Country: US (occurrence: US)
  Receive Date: 20121130
  Receipt Date: 20140108
  Transmission Date: 20141002
  Serious: Yes (Other)
  Sender: FDA-Public Use
  Company Number: US-ROCHE-1158685

PATIENT
  Age: 62 Year
  Sex: Male

DRUGS (1)
  1. VISMODEGIB [Suspect]
     Indication: CHONDROSARCOMA
     Dosage: TAC1, LAST DOSE PRIOR TO SAE: 12/MAR/2012
     Route: 048
     Dates: start: 20120220

REACTIONS (1)
  - Hypoalbuminaemia [Not Recovered/Not Resolved]
